FAERS Safety Report 9470493 (Version 1)
Quarter: 2013Q3

REPORT INFORMATION
  Report Type: Spontaneous
  Country: PT (occurrence: None)
  Receive Date: 20130815
  Receipt Date: 20130815
  Transmission Date: 20140515
  Serious: Yes (Hospitalization, Other)
  Sender: FDA-Public Use
  Company Number: AUR-APL-2013-06730

PATIENT
  Age: 76 Year
  Sex: Female

DRUGS (4)
  1. METFORMIN [Suspect]
     Dosage: (1000 MG, 3 IN 1 D)
  2. SIMVASTATIN [Concomitant]
  3. LOSARTAN [Concomitant]
  4. SITAGLIPTIN [Concomitant]

REACTIONS (15)
  - Lactic acidosis [None]
  - Renal failure acute [None]
  - Diarrhoea [None]
  - Multi-organ failure [None]
  - Blood glucose increased [None]
  - Dehydration [None]
  - Leukocytosis [None]
  - General physical health deterioration [None]
  - Depressed level of consciousness [None]
  - Hypothermia [None]
  - Hypotension [None]
  - Respiratory failure [None]
  - Iatrogenic injury [None]
  - Hypovolaemic shock [None]
  - Continuous haemodiafiltration [None]
